FAERS Safety Report 8506411-7 (Version None)
Quarter: 2012Q3

REPORT INFORMATION
  Report Type: 
  Country: None (occurrence: None)
  Receive Date: 20120712
  Receipt Date: 20120709
  Transmission Date: 20120928
  Serious: Yes (Other)
  Sender: FDA-Public Use
  Company Number: US-PFIZER INC-2012092379

PATIENT
  Sex: Female
  Weight: 55 kg

DRUGS (1)
  1. LO/OVRAL-28 [Suspect]
     Indication: CONTRACEPTION
     Dosage: ONE TABLET EVERY DAY
     Route: 048
     Dates: start: 20111003

REACTIONS (4)
  - UNINTENDED PREGNANCY [None]
  - PRODUCT QUALITY ISSUE [None]
  - DRUG INEFFECTIVE [None]
  - FOETAL DEATH [None]
